FAERS Safety Report 6502855-3 (Version None)
Quarter: 2009Q4

REPORT INFORMATION
  Report Type: 
  Country: None (occurrence: None)
  Receive Date: 20091217
  Receipt Date: 20091207
  Transmission Date: 20100525
  Serious: Yes (Hospitalization)
  Sender: FDA-Public Use
  Company Number: US-SOLVAY-00209007592

PATIENT
  Age: 61 Year
  Sex: Male
  Weight: 79.09 kg

DRUGS (10)
  1. ANDROGEL [Suspect]
     Indication: BLOOD TESTOSTERONE DECREASED
     Dosage: DAILY DOSE:  UNKNOWN, FREQUENCY: ONCE A DAY.
     Route: 062
     Dates: start: 20000101, end: 20090501
  2. ANDROGEL [Suspect]
     Dosage: DAILY DOSE:  UNKNOWN, FREQUENCY: ONCE A DAY.
     Route: 062
     Dates: start: 20090501, end: 20090701
  3. ANDROGEL [Suspect]
     Dosage: DAILY DOSE: 5 GRAM(S), FREQUENCY: 5GM DAILY FOR FOUR DAYS THEN OFF FOR TWO DAYS
     Route: 062
     Dates: start: 20091107
  4. VIAGRA [Concomitant]
     Indication: ERECTILE DYSFUNCTION
     Dosage: DAILY DOSE:  UNKNOWN
     Route: 048
  5. SPIRONOLACTONE [Concomitant]
     Indication: HYPERTENSION
     Dosage: DAILY DOSE:  UNKNOWN, AS USED: 25 MILLIGRAMS.
     Route: 048
  6. AMLODIPINE [Concomitant]
     Indication: HYPERTENSION
     Dosage: DAILY DOSE:  UNKNOWN, AS USED: 10 MILLIGRAMS.
     Route: 048
  7. BENAZEPRIL HYDROCHLORIDE [Concomitant]
     Indication: HYPERTENSION
     Dosage: DAILY DOSE:  UNKNOWN
     Route: 048
  8. SIMVASTATIN [Concomitant]
     Indication: BLOOD CHOLESTEROL INCREASED
     Dosage: DAILY DOSE:  UNKNOWN, AS USED: 40 MILLIGRAMS.
     Route: 048
  9. GLIPIZIDE [Concomitant]
     Indication: DIABETES MELLITUS
     Dosage: DAILY DOSE:  UNKNOWN, AS USED: 5 MILLIGRAMS.
     Route: 048
  10. GLIPIZIDE [Concomitant]
     Indication: DIABETES MELLITUS
     Dosage: DAILY DOSE: 5 MILLIGRAM(S)
     Route: 048

REACTIONS (2)
  - BLOOD CREATINE PHOSPHOKINASE INCREASED [None]
  - PANCREAS INFECTION [None]
